FAERS Safety Report 9697857 (Version 1)
Quarter: 2013Q4

REPORT INFORMATION
  Report Type: Spontaneous
  Country: FR (occurrence: None)
  Receive Date: 20131118
  Receipt Date: 20131118
  Transmission Date: 20140711
  Serious: Yes (Hospitalization)
  Sender: FDA-Public Use
  Company Number: 1944343

PATIENT
  Age: 65 Year
  Sex: Female

DRUGS (5)
  1. CARBOPLATIN [Suspect]
     Indication: OVARIAN CANCER
     Dosage: 490 MG MILLIGRAM(S), INTRAVENOUS DRIP
     Route: 041
     Dates: start: 20120210, end: 20120210
  2. POLARAMINE [Concomitant]
  3. (METHYLPREDNISOLONE MERCK) [Concomitant]
  4. (ZOPHREN          /00955301/) [Concomitant]
  5. (AZANTAC) [Concomitant]

REACTIONS (2)
  - Hypersensitivity [None]
  - Hot flush [None]
